FAERS Safety Report 8185686-0 (Version None)
Quarter: 2012Q1

REPORT INFORMATION
  Report Type: 
  Country: None (occurrence: None)
  Receive Date: 20120305
  Receipt Date: 20120223
  Transmission Date: 20120608
  Serious: Yes (Hospitalization, Other)
  Sender: FDA-Public Use
  Company Number: US-BAXTER-2012BH001421

PATIENT
  Sex: Male

DRUGS (4)
  1. DIANEAL [Suspect]
     Route: 033
     Dates: end: 20120101
  2. DIANEAL [Suspect]
     Indication: PERITONEAL DIALYSIS
     Route: 033
     Dates: end: 20120101
  3. DIANEAL [Suspect]
     Indication: PERITONEAL DIALYSIS
     Route: 033
     Dates: end: 20120101
  4. DIANEAL [Suspect]
     Route: 033
     Dates: end: 20120101

REACTIONS (3)
  - INFECTIOUS PERITONITIS [None]
  - CONFUSIONAL STATE [None]
  - HYPOXIA [None]
